FAERS Safety Report 6241451-2 (Version None)
Quarter: 2009Q2

REPORT INFORMATION
  Report Type: 
  Country: None (occurrence: None)
  Receive Date: 20090623
  Receipt Date: 20040223
  Transmission Date: 20091009
  Serious: Yes (Hospitalization)
  Sender: FDA-Public Use
  Company Number: SE-ROCHE-336422

PATIENT
  Sex: Male
  Weight: 118.5 kg

DRUGS (43)
  1. MYCOPHENOLATE MOFETIL [Suspect]
     Route: 048
     Dates: start: 20030326
  2. MYCOPHENOLATE MOFETIL [Suspect]
     Route: 048
     Dates: start: 20030418
  3. MYCOPHENOLATE MOFETIL [Suspect]
     Route: 048
     Dates: start: 20030425
  4. MYCOPHENOLATE MOFETIL [Suspect]
     Route: 048
     Dates: start: 20030426
  5. MYCOPHENOLATE MOFETIL [Suspect]
     Route: 048
     Dates: start: 20030427
  6. MYCOPHENOLATE MOFETIL [Suspect]
     Route: 048
     Dates: start: 20030428
  7. DACLIZUMAB [Suspect]
     Route: 042
     Dates: start: 20030326
  8. DACLIZUMAB [Suspect]
     Route: 042
     Dates: start: 20030408
  9. SIROLIMUS [Suspect]
     Route: 048
     Dates: start: 20030327
  10. SIROLIMUS [Suspect]
     Route: 048
     Dates: start: 20030330, end: 20030418
  11. PREDNISONE [Suspect]
     Dosage: DRUG: PREDNISON
     Route: 048
     Dates: start: 20030326
  12. PREDNISONE [Suspect]
     Route: 048
     Dates: start: 20030410
  13. PREDNISONE [Suspect]
     Route: 048
     Dates: start: 20030530
  14. PREDNISONE [Suspect]
     Route: 048
     Dates: start: 20030722
  15. PREDNISONE [Suspect]
     Route: 048
     Dates: start: 20030925
  16. CEFADROXIL [Concomitant]
     Dosage: DRUG: CEFODROXIL
     Route: 048
     Dates: start: 20030418, end: 20030616
  17. CEFOTAXIM [Concomitant]
     Route: 042
     Dates: start: 20030326, end: 20030327
  18. DOXAZOSIN MESYLATE [Concomitant]
     Route: 048
     Dates: start: 20030408
  19. DOXAZOSIN MESYLATE [Concomitant]
     Route: 048
     Dates: start: 20030417
  20. DOXAZOSIN MESYLATE [Concomitant]
     Route: 048
     Dates: start: 20030526
  21. DOXAZOSIN MESYLATE [Concomitant]
     Route: 048
     Dates: start: 20040524
  22. DOXAZOSIN MESYLATE [Concomitant]
     Route: 048
     Dates: start: 20040526
  23. EPOGEN [Concomitant]
     Dosage: DRUG: ERYTROPOIETIN
     Route: 058
     Dates: start: 20030427, end: 20030519
  24. FELODIPINE [Concomitant]
     Route: 048
     Dates: start: 20030329
  25. FELODIPINE [Concomitant]
     Dosage: FREQUENCY REPORTED: 2
     Route: 048
     Dates: start: 20030331
  26. FUROSEMID [Concomitant]
     Route: 048
     Dates: start: 20030327
  27. GANCICLOVIR [Concomitant]
     Dosage: FREQUENCY REPORTED: 1
     Route: 048
     Dates: start: 20030331, end: 20040704
  28. KLONIDIN [Concomitant]
     Route: 048
     Dates: start: 20030428
  29. KLONIDIN [Concomitant]
     Route: 048
     Dates: start: 20030430
  30. KLONIDIN [Concomitant]
     Route: 048
     Dates: start: 20030508
  31. KLONIDIN [Concomitant]
     Route: 048
     Dates: start: 20030520
  32. KLONIDIN [Concomitant]
     Route: 048
     Dates: start: 20030606, end: 20030616
  33. KLONIDIN [Concomitant]
     Route: 048
     Dates: start: 20040430
  34. KLONIDIN [Concomitant]
     Route: 048
     Dates: start: 20040508
  35. KLONIDIN [Concomitant]
     Route: 048
     Dates: start: 20040520
  36. KLONIDIN [Concomitant]
     Route: 048
     Dates: start: 20040606, end: 20040616
  37. MEROPENEM [Concomitant]
     Route: 042
     Dates: start: 20030414, end: 20030418
  38. METOPROLOL SUCCINATE [Concomitant]
     Route: 048
     Dates: start: 20030327
  39. METOPROLOL SUCCINATE [Concomitant]
     Dosage: FREQUENCY REPORTED: 1
     Route: 048
     Dates: start: 20030405
  40. PANTOPRAZOL [Concomitant]
     Route: 048
     Dates: start: 20030327
  41. PENTAMIDIN [Concomitant]
     Route: 055
     Dates: start: 20030331, end: 20030401
  42. RISPERIDONE [Concomitant]
     Route: 048
     Dates: start: 19970101
  43. VENLAFAXIN [Concomitant]
     Route: 048
     Dates: start: 19970101

REACTIONS (1)
  - WOUND DEHISCENCE [None]
